FAERS Safety Report 6967557-8 (Version None)
Quarter: 2010Q3

REPORT INFORMATION
  Report Type: 
  Country: None (occurrence: None)
  Receive Date: 20100907
  Receipt Date: 20100826
  Transmission Date: 20110219
  Serious: Yes (Other)
  Sender: FDA-Public Use
  Company Number: JP-NAPPMUNDI-MAG-2010-0001311

PATIENT
  Sex: Female

DRUGS (2)
  1. THEOPHYLLINE [Suspect]
     Route: 048
  2. CELESTAMINE TAB [Concomitant]
     Route: 065

REACTIONS (1)
  - ABORTION SPONTANEOUS [None]
